FAERS Safety Report 13395369 (Version 3)
Quarter: 2017Q2

REPORT INFORMATION
  Report Type: Spontaneous
  Country: US (occurrence: US)
  Receive Date: 20170403
  Receipt Date: 20170518
  Transmission Date: 20170830
  Serious: No
  Sender: FDA-Public Use
  Company Number: US-PFIZER INC-2017139797

PATIENT
  Age: 65 Year
  Sex: Female
  Weight: 68.4 kg

DRUGS (1)
  1. PREMARIN [Suspect]
     Active Substance: ESTROGENS, CONJUGATED
     Indication: VULVOVAGINAL DRYNESS
     Dosage: 0.5 MG, TWICE A WEEK (TUESDAY AND FRIDAY)
     Route: 067
     Dates: start: 2012

REACTIONS (3)
  - Incorrect dose administered [Not Recovered/Not Resolved]
  - Product quality issue [Not Recovered/Not Resolved]
  - Hot flush [Recovered/Resolved]
